FAERS Safety Report 8901786 (Version 2)
Quarter: 2012Q4

REPORT INFORMATION
  Report Type: Spontaneous
  Country: US (occurrence: None)
  Receive Date: 20121105
  Receipt Date: 20121221
  Transmission Date: 20130627
  Serious: Yes (Death, Hospitalization)
  Sender: FDA-Public Use
  Company Number: UTC-024896

PATIENT
  Age: 53 Year
  Sex: Female
  Weight: 50.9 kg

DRUGS (2)
  1. REMODULIN (2.5 MILLIGRAM/MILLILITERS, INJECTION FOR INFUSION) (TREPROSTINIL SODIUM) [Suspect]
     Indication: PRIMARY PULMONARY HYPERTENSION
     Dosage: 35.28 ug/kg (0.0245 ug/kg, 1 in 1 min), Intravenous drip
     Route: 041
     Dates: start: 20090424
  2. COUMADIN (WARFARIN SODIUM) [Concomitant]

REACTIONS (1)
  - Death [None]
